FAERS Safety Report 5023190-9 (Version None)
Quarter: 2006Q2

REPORT INFORMATION
  Report Type: 
  Country: None (occurrence: None)
  Receive Date: 20060428
  Receipt Date: 20060327
  Transmission Date: 20061013
  Serious: No
  Sender: FDA-Public Use
  Company Number: 012193

PATIENT
  Sex: Female

DRUGS (2)
  1. PRIALT [Suspect]
     Indication: PAIN
     Dosage: 0.11 UG, ONCE/HOUR, INTRATHECAL
     Route: 037
     Dates: start: 20050401, end: 20050701
  2. FENTANYL [Concomitant]

REACTIONS (1)
  - MOOD ALTERED [None]
